FAERS Safety Report 8320977-1 (Version None)
Quarter: 2012Q2

REPORT INFORMATION
  Report Type: 
  Country: None (occurrence: None)
  Receive Date: 20120430
  Receipt Date: 20120425
  Transmission Date: 20120825
  Serious: Yes (Death, Hospitalization, Other)
  Sender: FDA-Public Use
  Company Number: PHHY2012BR013901

PATIENT
  Age: 84 Year
  Sex: Male

DRUGS (1)
  1. FORMOTEROL FUMARATE [Suspect]
     Indication: ASTHMA
     Dosage: 1 DF (ONCE AT NIGHT, AND IS NECESSARY ONCE AT MORNING TOO)

REACTIONS (2)
  - MALAISE [None]
  - RESPIRATORY FAILURE [None]
